FAERS Safety Report 6431304-9 (Version None)
Quarter: 2009Q4

REPORT INFORMATION
  Report Type: 
  Country: None (occurrence: None)
  Receive Date: 20091105
  Receipt Date: 20091105
  Transmission Date: 20100525
  Serious: Yes (Other)
  Sender: FDA-Public Use
  Company Number: None

PATIENT
  Age: 41 Year

DRUGS (1)
  1. AVELOX [Suspect]
     Dosage: 1 2 X DAILY

REACTIONS (2)
  - FEELING HOT [None]
  - SUICIDAL IDEATION [None]
